FAERS Safety Report 9482375 (Version 2)
Quarter: 2013Q3

REPORT INFORMATION
  Report Type: Report from Study
  Country: DE (occurrence: DE)
  Receive Date: 20130828
  Receipt Date: 20130918
  Transmission Date: 20140515
  Serious: Yes (Hospitalization)
  Sender: FDA-Public Use
  Company Number: PHHO2013DE011138

PATIENT
  Sex: 0

DRUGS (4)
  1. NO TREATMENT RECEIVED [Suspect]
     Indication: LIVER TRANSPLANT
     Dosage: NO TREATMENT
     Route: 048
  2. SOLU DECORTIN H [Suspect]
     Dosage: 20 MG, QD
     Dates: start: 20130812
  3. LAMIVUDINE [Concomitant]
  4. PANTOPRAZOLE [Concomitant]

REACTIONS (1)
  - Wound dehiscence [Recovered/Resolved]
